FAERS Safety Report 22387272 (Version 1)
Quarter: 2023Q2

REPORT INFORMATION
  Report Type: Other
  Country: US (occurrence: None)
  Receive Date: 20230531
  Receipt Date: 20230531
  Transmission Date: 20230722
  Serious: Yes (Hospitalization)
  Sender: FDA-Public Use
  Company Number: US-ROCHE-3359261

PATIENT
  Age: 62 Year
  Sex: Male
  Weight: 70.37 kg

DRUGS (6)
  1. RITUXAN [Suspect]
     Active Substance: RITUXIMAB
     Indication: Non-Hodgkin^s lymphoma
     Dosage: INJECTION IV DRIP ;ONGOING: NO ?DATE OF SERVICE: 07/MAY/2019
     Route: 042
     Dates: start: 2019
  2. RITUXAN [Suspect]
     Active Substance: RITUXIMAB
     Indication: Extranodal marginal zone B-cell lymphoma (MALT type)
     Dosage: INJECTION IV DRIP ;ONGOING: YES
     Route: 042
     Dates: start: 20230502
  3. IVERMECTIN [Concomitant]
     Active Substance: IVERMECTIN
     Dosage: PENCIL ERASER SIZE ON TONGUE ;ONGOING: YES
     Dates: start: 202303
  4. IVERMECTIN [Concomitant]
     Active Substance: IVERMECTIN
     Dosage: PENCIL ERASER SIZE ON TONGUE ;ONGOING: NO
     Dates: start: 202303
  5. ALLOPURINOL [Concomitant]
     Active Substance: ALLOPURINOL
     Dates: start: 20230509, end: 20230509
  6. TESTOSTERONE [Concomitant]
     Active Substance: TESTOSTERONE
     Dosage: FRIDAYS ;ONGOING: YES

REACTIONS (21)
  - Rash [Recovered/Resolved]
  - Pain [Recovered/Resolved]
  - Hot flush [Unknown]
  - Urticaria [Recovered/Resolved]
  - Loss of consciousness [Unknown]
  - Pyrexia [Recovered/Resolved]
  - Back pain [Recovered/Resolved]
  - Arthralgia [Recovered/Resolved]
  - Hypotension [Unknown]
  - Dizziness [Unknown]
  - Malaise [Unknown]
  - Swelling [Unknown]
  - Irritability [Unknown]
  - Joint stiffness [Unknown]
  - Erythema [Unknown]
  - Pruritus [Recovered/Resolved]
  - Gastrointestinal disorder [Recovered/Resolved]
  - Constipation [Unknown]
  - Muscle spasms [Unknown]
  - Myalgia [Unknown]
  - Platelet count decreased [Unknown]

NARRATIVE: CASE EVENT DATE: 20230509
